FAERS Safety Report 5226774-8 (Version None)
Quarter: 2007Q1

REPORT INFORMATION
  Report Type: 
  Country: None (occurrence: None)
  Receive Date: 20070130
  Receipt Date: 20070117
  Transmission Date: 20070707
  Serious: Yes (Hospitalization)
  Sender: FDA-Public Use
  Company Number: FABR-11825

PATIENT
  Age: 52 Year
  Sex: Male
  Weight: 54 kg

DRUGS (3)
  1. FABRAZYME [Suspect]
     Indication: FABRY'S DISEASE
     Dosage: 1 MG/KG Q2WKS IV
     Route: 042
     Dates: start: 20010802
  2. PLAVIX [Concomitant]
  3. LARGACTIL [Concomitant]

REACTIONS (1)
  - ISCHAEMIC STROKE [None]
